FAERS Safety Report 12695498 (Version 5)
Quarter: 2017Q1

REPORT INFORMATION
  Report Type: Spontaneous
  Country: US (occurrence: US)
  Receive Date: 20160829
  Receipt Date: 20170214
  Transmission Date: 20170428
  Serious: No
  Sender: FDA-Public Use
  Company Number: PHHY2016US118214

PATIENT
  Sex: Female
  Weight: 72.56 kg

DRUGS (5)
  1. ZOFRAN [Suspect]
     Active Substance: ONDANSETRON HYDROCHLORIDE
     Dosage: 8 MG, ONCE/SINGLE
     Route: 042
     Dates: start: 20110526, end: 20110526
  2. ZOFRAN [Suspect]
     Active Substance: ONDANSETRON HYDROCHLORIDE
     Indication: VOMITING IN PREGNANCY
     Dosage: UNK
     Route: 048
  3. ZOFRAN [Suspect]
     Active Substance: ONDANSETRON HYDROCHLORIDE
     Indication: VOMITING IN PREGNANCY
     Dosage: 8 MG, ONCE/SINGLE
     Route: 042
     Dates: start: 20110130, end: 20110130
  4. ZOFRAN [Suspect]
     Active Substance: ONDANSETRON HYDROCHLORIDE
     Dosage: 8 MG, ONCE/SINGLE
     Route: 042
     Dates: start: 20110731, end: 20110731
  5. ONDANSETRON DR REDDY [Suspect]
     Active Substance: ONDANSETRON
     Indication: VOMITING IN PREGNANCY
     Dosage: 8 MG, QD
     Route: 048
     Dates: start: 20110131, end: 20110420

REACTIONS (5)
  - Anxiety [Unknown]
  - Maternal exposure during pregnancy [Unknown]
  - Stress [Unknown]
  - Emotional distress [Unknown]
  - Product use issue [Unknown]
